FAERS Safety Report 17867579 (Version 2)
Quarter: 2020Q2

REPORT INFORMATION
  Report Type: Spontaneous
  Country: RU (occurrence: RU)
  Receive Date: 20200605
  Receipt Date: 20200619
  Transmission Date: 20200714
  Serious: Yes (Death, Other)
  Sender: FDA-Public Use
  Company Number: RU-SHIRE-RU202017682

PATIENT

DRUGS (1)
  1. ELAPRASE [Suspect]
     Active Substance: IDURSULFASE
     Indication: PRODUCT USED FOR UNKNOWN INDICATION
     Dosage: 0.5 MILLIGRAM/KILOGRAM, UNKNOWN
     Route: 065
     Dates: start: 2013

REACTIONS (2)
  - Multiple organ dysfunction syndrome [Fatal]
  - Disease progression [Fatal]
